FAERS Safety Report 6750173-0 (Version None)
Quarter: 2010Q2

REPORT INFORMATION
  Report Type: 
  Country: None (occurrence: None)
  Receive Date: 20100601
  Receipt Date: 20100521
  Transmission Date: 20101027
  Serious: Yes (Hospitalization)
  Sender: FDA-Public Use
  Company Number: FR-PFIZER INC-2010065153

PATIENT
  Age: 48 Year
  Sex: Female
  Weight: 65 kg

DRUGS (5)
  1. METHYLPREDNISOLONE [Suspect]
     Dosage: UNK
     Route: 048
     Dates: start: 20100401
  2. IRINOTECAN HCL [Suspect]
     Indication: GLIOBLASTOMA
     Dosage: UNK
     Route: 042
     Dates: start: 20100421, end: 20100505
  3. BEVACIZUMAB [Suspect]
     Indication: GLIOBLASTOMA
     Dosage: UNK
     Route: 042
     Dates: start: 20100421, end: 20100505
  4. LOVENOX [Concomitant]
     Dosage: UNK
     Route: 058
     Dates: start: 20100401
  5. NEXIUM [Concomitant]
     Dosage: UNK
     Route: 048
     Dates: start: 20100401

REACTIONS (1)
  - DEVICE RELATED INFECTION [None]
